FAERS Safety Report 6881820-0 (Version None)
Quarter: 2010Q3

REPORT INFORMATION
  Report Type: 
  Country: None (occurrence: None)
  Receive Date: 20100729
  Receipt Date: 20100706
  Transmission Date: 20110219
  Serious: No
  Sender: FDA-Public Use
  Company Number: US-B.I. PHARMACEUTICALS,INC./RIDGEFIELD-2010-BP-07639BP

PATIENT
  Sex: Female

DRUGS (2)
  1. MIRAPEX [Suspect]
     Indication: RESTLESS LEGS SYNDROME
     Dosage: 0.375 MG
     Route: 048
     Dates: start: 20080101, end: 20080101
  2. MIRAPEX [Suspect]
     Dosage: 0.375 MG
     Route: 048
     Dates: start: 20100301

REACTIONS (2)
  - RESTLESS LEGS SYNDROME [None]
  - VISUAL IMPAIRMENT [None]
